FAERS Safety Report 4838505-1 (Version None)
Quarter: 2005Q4

REPORT INFORMATION
  Report Type: 
  Country: None (occurrence: None)
  Receive Date: 20051123
  Receipt Date: 20051115
  Transmission Date: 20060501
  Serious: Yes (Life-Threatening, Hospitalization, Other)
  Sender: FDA-Public Use
  Company Number: 2005-10-1644

PATIENT
  Age: 62 Year
  Sex: Male
  Weight: 80.7403 kg

DRUGS (2)
  1. TEMODAR [Suspect]
     Indication: GLIOBLASTOMA MULTIFORME
     Dosage: 150MG ORAL
     Route: 048
     Dates: start: 20050907, end: 20051021
  2. RADIATION THERAPY [Suspect]
     Indication: GLIOBLASTOMA MULTIFORME
     Dosage: UNKNOWN X-RAY THERAPY
     Dates: end: 20051001

REACTIONS (4)
  - HEPATIC NECROSIS [None]
  - HEPATIC STEATOSIS [None]
  - HEPATITIS CHOLESTATIC [None]
  - HEPATOCELLULAR DAMAGE [None]
